FAERS Safety Report 11334312 (Version 2)
Quarter: 2016Q3

REPORT INFORMATION
  Report Type: Report from Study
  Country: DE (occurrence: DE)
  Receive Date: 20150803
  Receipt Date: 20160708
  Transmission Date: 20161109
  Serious: Yes (Hospitalization)
  Sender: FDA-Public Use
  Company Number: DE-TEVA-583352GER

PATIENT
  Age: 7 Decade
  Sex: Male
  Weight: 77 kg

DRUGS (14)
  1. EMEND [Concomitant]
     Active Substance: APREPITANT
     Indication: NAUSEA
     Route: 042
     Dates: start: 20150519
  2. GRANISETRON [Concomitant]
     Active Substance: GRANISETRON
     Indication: NAUSEA
     Route: 042
     Dates: start: 20150519
  3. DEXAMETHASON [Concomitant]
     Active Substance: DEXAMETHASONE
     Indication: NAUSEA
     Route: 042
     Dates: start: 20150519
  4. DEXAMETHASON [Concomitant]
     Active Substance: DEXAMETHASONE
     Route: 048
     Dates: start: 20150519
  5. MCP [Concomitant]
     Active Substance: METOCLOPRAMIDE HYDROCHLORIDE
     Indication: NAUSEA
     Route: 048
     Dates: start: 20150519
  6. IBU [Concomitant]
     Active Substance: IBUPROFEN
     Route: 048
     Dates: start: 201504
  7. ETOPOSID [Suspect]
     Active Substance: ETOPOSIDE
     Indication: SMALL CELL LUNG CANCER
     Route: 042
     Dates: start: 20150907, end: 20150909
  8. CISPLATIN. [Suspect]
     Active Substance: CISPLATIN
     Indication: SMALL CELL LUNG CANCER
     Route: 042
     Dates: start: 20150907, end: 20150907
  9. OSMOFUNDIN [Concomitant]
     Indication: CONSTIPATION
     Route: 042
     Dates: start: 20150519
  10. LONQUEX [Suspect]
     Active Substance: LIPEGFILGRASTIM
     Indication: NEUTROPENIA
     Dosage: LAST DOSE PRIOR TO AE: 12-JUN-2015
     Dates: start: 20150522, end: 20150909
  11. ETOPOSID [Suspect]
     Active Substance: ETOPOSIDE
     Dosage: LAST DOSE PRIOR TO AE: 11-JUN-2015
     Route: 042
     Dates: start: 20150519, end: 20150611
  12. OFLOXACIN. [Concomitant]
     Active Substance: OFLOXACIN
     Indication: BACTERIAL INFECTION
     Route: 048
     Dates: start: 20150519
  13. LAXATAN [Concomitant]
     Indication: CONSTIPATION
     Route: 048
     Dates: start: 20150519
  14. CISPLATIN. [Suspect]
     Active Substance: CISPLATIN
     Dosage: LAST DOSE PRIOR TO AE: 09-JUN-2015
     Route: 042
     Dates: start: 20150519, end: 20150609

REACTIONS (1)
  - Pneumonia [Recovered/Resolved]

NARRATIVE: CASE EVENT DATE: 20150619
